FAERS Safety Report 12886754 (Version 1)
Quarter: 2016Q4

REPORT INFORMATION
  Report Type: Spontaneous
  Country: GB (occurrence: GB)
  Receive Date: 20161026
  Receipt Date: 20161026
  Transmission Date: 20170207
  Serious: Yes (Hospitalization, Other)
  Sender: FDA-Public Use
  Company Number: GB-PFIZER INC-2016430473

PATIENT
  Age: 70 Year
  Sex: Female

DRUGS (7)
  1. NEURONTIN [Suspect]
     Active Substance: GABAPENTIN
     Indication: VAGINAL INFECTION
     Dosage: 300 MG, DAILY
  2. PROMAZINE [Concomitant]
     Active Substance: PROMAZINE
     Indication: ANXIETY
     Dosage: UNK
     Dates: start: 1993
  3. CLONAZEPAM. [Concomitant]
     Active Substance: CLONAZEPAM
     Indication: ANXIETY
     Dosage: UNK
     Dates: start: 2012
  4. NEURONTIN [Suspect]
     Active Substance: GABAPENTIN
     Indication: GENITAL DISCOMFORT
     Dosage: UNK, DAILY
     Dates: start: 2013
  5. NEURONTIN [Suspect]
     Active Substance: GABAPENTIN
     Dosage: 300 MG, 2X/DAY MORNING AND EVENING
  6. NEURONTIN [Suspect]
     Active Substance: GABAPENTIN
     Dosage: 1200 MG, DAILY
  7. SEROXAT [Concomitant]
     Active Substance: PAROXETINE HYDROCHLORIDE
     Indication: DEPRESSION
     Dosage: UNK
     Dates: start: 1993

REACTIONS (6)
  - Eczema [Recovered/Resolved]
  - Product use issue [Unknown]
  - Drug prescribing error [Unknown]
  - Alopecia [Recovered/Resolved]
  - Psoriasis [Recovered/Resolved]
  - Skin plaque [Recovered/Resolved]

NARRATIVE: CASE EVENT DATE: 201511
